FAERS Safety Report 10235239 (Version 1)
Quarter: 2014Q2

REPORT INFORMATION
  Report Type: Spontaneous
  Country: JM (occurrence: JM)
  Receive Date: 20140613
  Receipt Date: 20140613
  Transmission Date: 20141212
  Serious: Yes (Hospitalization)
  Sender: FDA-Public Use
  Company Number: JM-B.I. PHARMACEUTICALS,INC./RIDGEFIELD-2014-BI-26377CN

PATIENT
  Age: 80 Year
  Sex: Male

DRUGS (1)
  1. SPIRIVA [Suspect]
     Indication: CHRONIC OBSTRUCTIVE PULMONARY DISEASE
     Route: 065

REACTIONS (1)
  - Rectal haemorrhage [Unknown]
